FAERS Safety Report 4608418-9 (Version None)
Quarter: 2005Q1

REPORT INFORMATION
  Report Type: 
  Country: None (occurrence: None)
  Receive Date: 20050309
  Receipt Date: 20050218
  Transmission Date: 20050727
  Serious: Yes (Hospitalization)
  Sender: FDA-Public Use
  Company Number: DE_030511317

PATIENT
  Age: 29 Year
  Sex: Male
  Weight: 126 kg

DRUGS (1)
  1. ZYPREXA [Suspect]
     Indication: SCHIZOPHRENIA, PARANOID TYPE
     Dosage: 10 MG IN THE EVENING
     Dates: start: 20030421, end: 20030425

REACTIONS (3)
  - ASPARTATE AMINOTRANSFERASE INCREASED [None]
  - DRUG SCREEN POSITIVE [None]
  - RHABDOMYOLYSIS [None]
